FAERS Safety Report 9397164 (Version 2)
Quarter: 2013Q3

REPORT INFORMATION
  Report Type: Spontaneous
  Country: NO (occurrence: NO)
  Receive Date: 20130712
  Receipt Date: 20130725
  Transmission Date: 20140515
  Serious: Yes (Life-Threatening, Hospitalization)
  Sender: FDA-Public Use
  Company Number: PHHY2013NO072480

PATIENT
  Age: 62 Year
  Sex: Female

DRUGS (16)
  1. SANDIMMUN [Suspect]
     Dosage: 75 MG, 50 MG IN MORNING, 25 MG IN EVENING
  2. AFINITOR [Interacting]
     Indication: BREAST CANCER METASTATIC
     Dosage: 10 MG, QD
     Route: 048
     Dates: start: 20130319
  3. AFINITOR [Interacting]
     Dosage: 5 MG, QD
     Route: 048
     Dates: start: 20130506, end: 20130514
  4. ALBYL-E [Concomitant]
     Dosage: 75MG,QD
  5. CEFOTAXIME [Concomitant]
     Dosage: 2 G, BID
     Route: 042
  6. ISMO [Concomitant]
     Dosage: 20MG, BID
  7. FUROSEMIDE [Concomitant]
     Dosage: 20 MG, PRN
  8. AZITROMAX [Concomitant]
     Dosage: 500MG,QD
  9. CELLCEPT [Concomitant]
     Dosage: 500 MG, BID
  10. NATRON//SODIUM BICARBONATE [Concomitant]
     Dosage: 1 G, BID
  11. NORVASC [Concomitant]
     Dosage: 5 MG, QD
  12. AROMASIN [Concomitant]
     Dosage: 20 MG, QD
  13. SELO-ZOK [Concomitant]
     Dosage: 50 MG, QD
  14. SOMAC [Concomitant]
     Dosage: 40 MG, QD
  15. NATRON [Concomitant]
     Dosage: 1 G, BID
  16. FUROSEMID [Concomitant]
     Dosage: 20 MG, UNK

REACTIONS (4)
  - Metabolic acidosis [Recovered/Resolved]
  - Acute respiratory failure [Recovered/Resolved]
  - Drug interaction [Recovered/Resolved]
  - Pneumonitis [Recovered/Resolved]
